FAERS Safety Report 15547845 (Version 1)
Quarter: 2018Q4

REPORT INFORMATION
  Report Type: Report from Study
  Country: US (occurrence: US)
  Receive Date: 20181024
  Receipt Date: 20181024
  Transmission Date: 20190205
  Serious: Yes (Hospitalization)
  Sender: FDA-Public Use
  Company Number: US-ACTELION-A-NJ2018-180515

PATIENT
  Age: 82 Year
  Sex: Female

DRUGS (18)
  1. OPSUMIT [Suspect]
     Active Substance: MACITENTAN
     Indication: PULMONARY HYPERTENSION
     Dosage: 10 MG, QD
     Route: 048
     Dates: start: 20160502
  2. METOPROLOL. [Concomitant]
     Active Substance: METOPROLOL
  3. ZYRTEC [Concomitant]
     Active Substance: CETIRIZINE HYDROCHLORIDE
  4. ADCIRCA [Concomitant]
     Active Substance: TADALAFIL
  5. LEVALBUTEROL. [Concomitant]
     Active Substance: LEVALBUTEROL
  6. ZANTAC [Concomitant]
     Active Substance: RANITIDINE HYDROCHLORIDE
  7. MULTAQ [Concomitant]
     Active Substance: DRONEDARONE
  8. TRADJENTA [Concomitant]
     Active Substance: LINAGLIPTIN
  9. OMEPRAZOLE. [Concomitant]
     Active Substance: OMEPRAZOLE
  10. NORVASC [Concomitant]
     Active Substance: AMLODIPINE BESYLATE
  11. PREDNISONE. [Concomitant]
     Active Substance: PREDNISONE
  12. ASPIRIN. [Concomitant]
     Active Substance: ASPIRIN
  13. LUMIGAN [Concomitant]
     Active Substance: BIMATOPROST
  14. COLCHICINE. [Concomitant]
     Active Substance: COLCHICINE
  15. MOMETASONE [Concomitant]
     Active Substance: MOMETASONE
  16. IRBESARTAN. [Concomitant]
     Active Substance: IRBESARTAN
  17. SE TAN PLUS [Concomitant]
  18. FUROSEMIDE. [Concomitant]
     Active Substance: FUROSEMIDE

REACTIONS (2)
  - Pain in extremity [Not Recovered/Not Resolved]
  - Gout [Unknown]

NARRATIVE: CASE EVENT DATE: 20171012
